FAERS Safety Report 9477521 (Version 5)
Quarter: 2014Q2

REPORT INFORMATION
  Report Type: Spontaneous
  Country: BR (occurrence: BR)
  Receive Date: 20130827
  Receipt Date: 20140623
  Transmission Date: 20141212
  Serious: Yes (Other)
  Sender: FDA-Public Use
  Company Number: BR-AMGEN-BRACT2012003929

PATIENT
  Age: 48 Year
  Sex: Male
  Weight: 100 kg

DRUGS (6)
  1. ENBREL [Suspect]
     Indication: ANKYLOSING SPONDYLITIS
     Dosage: 50 MG, WEEKLY
     Route: 058
     Dates: start: 2010
  2. ENBREL [Suspect]
     Dosage: 50 MG, QWK
     Route: 058
     Dates: start: 201106
  3. OMEPRAZOLE [Concomitant]
     Dosage: 20 MG, 2X/DAY
  4. METICORTEN [Concomitant]
     Indication: ANKYLOSING SPONDYLITIS
     Dosage: 20 MG, 2X/DAY
     Dates: start: 20110808
  5. LOSARTAN [Concomitant]
     Indication: HYPERTENSION
     Dosage: 1 TABLET OF 50 MG, 1X/DAY
  6. HYDROCHLOROTHIAZIDE [Concomitant]
     Dosage: 1 TABLET OF 25 MG, 1X/DAY

REACTIONS (19)
  - Diarrhoea [Unknown]
  - Fatigue [Unknown]
  - Pain [Not Recovered/Not Resolved]
  - Umbilical hernia [Not Recovered/Not Resolved]
  - Malaise [Unknown]
  - Abdominal pain upper [Unknown]
  - Retching [Unknown]
  - Eating disorder [Unknown]
  - Abdominal rigidity [Unknown]
  - Nasal congestion [Not Recovered/Not Resolved]
  - Cough [Not Recovered/Not Resolved]
  - Ear discomfort [Unknown]
  - Hypertension [Not Recovered/Not Resolved]
  - Groin pain [Not Recovered/Not Resolved]
  - Dizziness [Unknown]
  - Oral herpes [Unknown]
  - Injection site swelling [Unknown]
  - Nasopharyngitis [Not Recovered/Not Resolved]
  - Sinusitis [Unknown]
